FAERS Safety Report 8480396-4 (Version None)
Quarter: 2012Q3

REPORT INFORMATION
  Report Type: 
  Country: None (occurrence: None)
  Receive Date: 20120702
  Receipt Date: 20120626
  Transmission Date: 20120928
  Serious: Yes (Hospitalization)
  Sender: FDA-Public Use
  Company Number: CA-ROCHE-1082733

PATIENT
  Sex: Female

DRUGS (2)
  1. OLMESARTAN MEDOXOMIL [Concomitant]
  2. XOLAIR [Suspect]
     Indication: ASTHMA
     Route: 058
     Dates: start: 20051104

REACTIONS (6)
  - VOMITING [None]
  - MALAISE [None]
  - LABYRINTHITIS [None]
  - ASTHENIA [None]
  - SWELLING FACE [None]
  - DIARRHOEA [None]
